FAERS Safety Report 7091013-2 (Version None)
Quarter: 2010Q4

REPORT INFORMATION
  Report Type: 
  Country: None (occurrence: None)
  Receive Date: 20101109
  Receipt Date: 20101027
  Transmission Date: 20110411
  Serious: Yes (Death, Other)
  Sender: FDA-Public Use
  Company Number: JP-ELI_LILLY_AND_COMPANY-JP201010006903

PATIENT
  Age: 69 Year
  Sex: Male

DRUGS (2)
  1. GEMZAR [Suspect]
     Indication: PANCREATIC CARCINOMA NON-RESECTABLE
     Dosage: 600 MG, OTHER
     Route: 042
     Dates: start: 20090101
  2. TS 1 [Concomitant]
     Indication: PANCREATIC CARCINOMA NON-RESECTABLE
     Dosage: 80 MG, OTHER
     Route: 048
     Dates: start: 20090101

REACTIONS (4)
  - CARDIAC FAILURE [None]
  - MULTI-ORGAN FAILURE [None]
  - PNEUMONIA [None]
  - SKIN ULCER [None]
